FAERS Safety Report 14119165 (Version 1)
Quarter: 2017Q4

REPORT INFORMATION
  Report Type: Spontaneous
  Country: US (occurrence: None)
  Receive Date: 20171023
  Receipt Date: 20171023
  Transmission Date: 20180321
  Serious: Yes (Hospitalization)
  Sender: FDA-Public Use
  Company Number: None

PATIENT
  Age: 32 Year
  Sex: Female

DRUGS (3)
  1. E-RAPID NEBULIZER HANDSET [Concomitant]
  2. TOBRAMYCIN 300MG/5ML [Suspect]
     Active Substance: TOBRAMYCIN
     Indication: CYSTIC FIBROSIS
     Dosage: 300MG/5ML I BID ORAL NEBULIZED
     Route: 048
     Dates: start: 20161123
  3. SCANDISHAKE [Concomitant]
     Active Substance: DIETARY SUPPLEMENT

REACTIONS (1)
  - Lung transplant [None]

NARRATIVE: CASE EVENT DATE: 20171004
